FAERS Safety Report 10249052 (Version 2)
Quarter: 2015Q2

REPORT INFORMATION
  Report Type: Spontaneous
  Country: US (occurrence: US)
  Receive Date: 20140620
  Receipt Date: 20150410
  Transmission Date: 20150821
  Serious: Yes (Death, Life-Threatening, Hospitalization, Other)
  Sender: FDA-Public Use
  Company Number: US-MERCK-1406USA009628

PATIENT
  Sex: Male
  Weight: 72.56 kg

DRUGS (2)
  1. JANUVIA [Suspect]
     Active Substance: SITAGLIPTIN PHOSPHATE
     Indication: TYPE 2 DIABETES MELLITUS
     Dosage: 100 MG, QD
     Route: 048
     Dates: start: 20071130, end: 20121118
  2. JANUMET [Suspect]
     Active Substance: METFORMIN HYDROCHLORIDE\SITAGLIPTIN PHOSPHATE
     Indication: TYPE 2 DIABETES MELLITUS
     Dosage: 50-500 MG, BID
     Route: 048
     Dates: start: 20120316, end: 20120730

REACTIONS (53)
  - Metastases to liver [Unknown]
  - Chest pain [Unknown]
  - Dyspnoea [Unknown]
  - Hypercholesterolaemia [Unknown]
  - Drug eruption [Recovered/Resolved]
  - Lung disorder [Unknown]
  - Sciatica [Unknown]
  - Dry eye [Unknown]
  - Hypertension [Unknown]
  - Dizziness [Unknown]
  - Metastases to lymph nodes [Unknown]
  - Pulmonary mass [Unknown]
  - Vision blurred [Unknown]
  - Hydrocele [Unknown]
  - Blood albumin decreased [Unknown]
  - Skin hyperpigmentation [Unknown]
  - Spinal osteoarthritis [Not Recovered/Not Resolved]
  - Syncope [Unknown]
  - Cough [Unknown]
  - Arthralgia [Unknown]
  - Diverticulum intestinal [Unknown]
  - Cardiac failure congestive [Unknown]
  - Pneumonia viral [Recovering/Resolving]
  - Head injury [Unknown]
  - Fall [Unknown]
  - Hepatic lesion [Unknown]
  - Inguinal hernia [Unknown]
  - Cerebral ischaemia [Unknown]
  - Anaemia [Unknown]
  - Soft tissue neoplasm [Unknown]
  - Loss of consciousness [Unknown]
  - Oedema peripheral [Unknown]
  - Decreased appetite [Unknown]
  - Fatigue [Unknown]
  - Lymphadenopathy [Unknown]
  - Generalised oedema [Unknown]
  - Pneumonitis [Recovering/Resolving]
  - Pancreatic carcinoma metastatic [Fatal]
  - Metastases to bone [Unknown]
  - Cholelithiasis [Unknown]
  - Escherichia bacteraemia [Unknown]
  - Anaemia of chronic disease [Not Recovered/Not Resolved]
  - Toxicity to various agents [Recovering/Resolving]
  - Back pain [Not Recovered/Not Resolved]
  - Constipation [Unknown]
  - Metastases to lung [Unknown]
  - Bone lesion [Unknown]
  - Muscle atrophy [Unknown]
  - Hypovolaemia [Unknown]
  - Bone lesion [Unknown]
  - Vertebral lesion [Unknown]
  - Lung disorder [Recovering/Resolving]
  - Pleural fibrosis [Unknown]

NARRATIVE: CASE EVENT DATE: 2011
